FAERS Safety Report 8578100-4 (Version None)
Quarter: 2012Q3

REPORT INFORMATION
  Report Type: 
  Country: None (occurrence: None)
  Receive Date: 20120808
  Receipt Date: 20120803
  Transmission Date: 20120928
  Serious: Yes (Other)
  Sender: FDA-Public Use
  Company Number: PHHY2012CN067736

PATIENT
  Age: 72 Year
  Sex: Female

DRUGS (3)
  1. FEMARA [Suspect]
     Indication: BREAST CANCER
     Dosage: 2.5MG PER DAY
     Dates: start: 20120601
  2. FEMARA [Suspect]
     Dosage: 1.25 MG/DAY
     Dates: start: 20120725, end: 20120730
  3. FEMARA [Suspect]
     Dosage: 2.5MG PER DAY
     Dates: start: 20120731

REACTIONS (4)
  - DIZZINESS [None]
  - ABDOMINAL DISCOMFORT [None]
  - INCORRECT DOSE ADMINISTERED [None]
  - HYPOTENSION [None]
